FAERS Safety Report 5054452-7 (Version None)
Quarter: 2006Q3

REPORT INFORMATION
  Report Type: 
  Country: None (occurrence: None)
  Receive Date: 20060713
  Receipt Date: 20060629
  Transmission Date: 20061208
  Serious: Yes (Hospitalization)
  Sender: FDA-Public Use
  Company Number: CLOF-10267

PATIENT
  Age: 68 Year
  Sex: Male

DRUGS (1)
  1. CLOFARABINE [Suspect]
     Indication: MYELODYSPLASTIC SYNDROME
     Dosage: 62.7 MG QD X 5 IV
     Route: 042
     Dates: start: 20060620, end: 20060624

REACTIONS (4)
  - BLOOD CREATININE INCREASED [None]
  - DEHYDRATION [None]
  - HYPOTENSION [None]
  - MUSCULAR WEAKNESS [None]
